FAERS Safety Report 13831077 (Version 1)
Quarter: 2017Q3

REPORT INFORMATION
  Report Type: Spontaneous
  Country: FR (occurrence: FR)
  Receive Date: 20170803
  Receipt Date: 20170803
  Transmission Date: 20171127
  Serious: Yes (Other)
  Sender: FDA-Public Use
  Company Number: FR-PFIZER INC-2017329434

PATIENT
  Age: 44 Year
  Sex: Female
  Weight: 77 kg

DRUGS (4)
  1. LUTENYL [Concomitant]
     Active Substance: NOMEGESTROL ACETATE
     Indication: HORMONE REPLACEMENT THERAPY
     Dosage: 2.5 MG, DAILY
  2. OROMONE [Concomitant]
     Active Substance: ESTRADIOL
     Indication: HORMONE REPLACEMENT THERAPY
     Dosage: 2 MG, DAILY
  3. DOSTINEX [Suspect]
     Active Substance: CABERGOLINE
     Dosage: 1.5 MG, WEEKLY
     Route: 048
     Dates: start: 201406, end: 20170424
  4. DOSTINEX [Suspect]
     Active Substance: CABERGOLINE
     Indication: HYPERPROLACTINAEMIA
     Dosage: 0.5 MG, WEEKLY
     Route: 048
     Dates: start: 201307, end: 201406

REACTIONS (2)
  - Drug effect incomplete [Recovered/Resolved]
  - Mitral valve thickening [Unknown]

NARRATIVE: CASE EVENT DATE: 20140630
